FAERS Safety Report 12072259 (Version 3)
Quarter: 2016Q2

REPORT INFORMATION
  Report Type: Report from Study
  Country: JP (occurrence: JP)
  Receive Date: 20160212
  Receipt Date: 20160407
  Transmission Date: 20160815
  Serious: Yes (Hospitalization)
  Sender: FDA-Public Use
  Company Number: PHJP2016JP002602

PATIENT
  Age: 62 Year
  Sex: Male
  Weight: 65 kg

DRUGS (20)
  1. TACROLIMUS. [Suspect]
     Active Substance: TACROLIMUS
     Dosage: 2 MG, BID
     Route: 048
     Dates: start: 20151217, end: 20151223
  2. TACROLIMUS. [Suspect]
     Active Substance: TACROLIMUS
     Dosage: 2.5 MG, BID
     Route: 048
     Dates: start: 20151224, end: 20160104
  3. TACROLIMUS. [Suspect]
     Active Substance: TACROLIMUS
     Dosage: 3.5 MG, BID
     Route: 048
     Dates: start: 20160105, end: 20160111
  4. TACROLIMUS. [Suspect]
     Active Substance: TACROLIMUS
     Dosage: 1.5 MG, BID
     Route: 048
     Dates: end: 20151216
  5. TACROLIMUS. [Suspect]
     Active Substance: TACROLIMUS
     Dosage: 3 MG, BID
     Route: 048
     Dates: start: 20160112, end: 20160207
  6. WARFARIN [Suspect]
     Active Substance: WARFARIN
     Indication: PORTAL VEIN THROMBOSIS
     Dosage: 2 MG, QD
     Route: 048
     Dates: start: 20160105, end: 20160126
  7. TRAZENTA [Concomitant]
     Active Substance: LINAGLIPTIN
     Indication: DIABETES MELLITUS
     Dosage: 5 MG, QD
     Route: 048
     Dates: start: 20151014
  8. CERTICAN [Suspect]
     Active Substance: EVEROLIMUS
     Indication: LIVER TRANSPLANT
     Dosage: 1 MG, BID
     Route: 048
     Dates: start: 20151023
  9. GLUFAST [Concomitant]
     Active Substance: MITIGLINIDE
     Indication: DIABETES MELLITUS
     Dosage: 10 MG, TID
     Route: 048
     Dates: start: 20151029
  10. CERTICAN [Suspect]
     Active Substance: EVEROLIMUS
     Dosage: 3 MG, BID
     Route: 048
     Dates: start: 20160112
  11. TACROLIMUS. [Suspect]
     Active Substance: TACROLIMUS
     Dosage: 3 MG, UNK
     Route: 048
     Dates: start: 20160210
  12. NOVOLIN N [Concomitant]
     Active Substance: INSULIN HUMAN
     Indication: DIABETES MELLITUS
     Dosage: 8 IU, QD
     Route: 058
     Dates: start: 20151030
  13. TACROLIMUS. [Suspect]
     Active Substance: TACROLIMUS
     Dosage: 4 MG, UNK
     Route: 048
     Dates: start: 20160208, end: 20160209
  14. URSODEOXYCHOLIC AC [Concomitant]
     Indication: BILE OUTPUT ABNORMAL
     Dosage: 200 MG, TID
     Route: 048
     Dates: start: 20150926
  15. LUNESTA [Concomitant]
     Active Substance: ESZOPICLONE
     Indication: INSOMNIA
     Dosage: 1 MG, QD
     Route: 048
     Dates: start: 20150924
  16. CERTICAN [Suspect]
     Active Substance: EVEROLIMUS
     Dosage: 1.5 MG, BID
     Route: 048
     Dates: end: 20151223
  17. CERTICAN [Suspect]
     Active Substance: EVEROLIMUS
     Dosage: 2 MG, BID
     Route: 048
     Dates: start: 20151224, end: 20160111
  18. WARFARIN [Suspect]
     Active Substance: WARFARIN
     Dosage: 3 MG, QD
     Route: 048
     Dates: start: 20160127, end: 20160204
  19. PARIET [Concomitant]
     Active Substance: RABEPRAZOLE SODIUM
     Indication: GASTRITIS PROPHYLAXIS
     Dosage: 10 MG, QD
     Route: 048
     Dates: start: 20150929
  20. TACROLIMUS. [Suspect]
     Active Substance: TACROLIMUS
     Indication: LIVER TRANSPLANT
     Dosage: 1 MG, BID
     Route: 048
     Dates: start: 20150928

REACTIONS (1)
  - Duodenal ulcer haemorrhage [Recovered/Resolved]

NARRATIVE: CASE EVENT DATE: 20160204
